FAERS Safety Report 7731121-3 (Version None)
Quarter: 2011Q3

REPORT INFORMATION
  Report Type: 
  Country: None (occurrence: None)
  Receive Date: 20110906
  Receipt Date: 20110906
  Transmission Date: 20111222
  Serious: Yes (Death, Life-Threatening, Hospitalization, Disabling, Congenital Anomaly, Other)
  Sender: FDA-Public Use
  Company Number: None

PATIENT
  Age: 41 Year
  Sex: Female
  Weight: 70.306 kg

DRUGS (1)
  1. THYROID TAB [Suspect]
     Indication: HYPOTHYROIDISM
     Dosage: 120MG.
     Route: 048
     Dates: start: 20110809, end: 20110809

REACTIONS (7)
  - TREMOR [None]
  - FATIGUE [None]
  - DIZZINESS [None]
  - NAUSEA [None]
  - MALAISE [None]
  - DIARRHOEA [None]
  - HEART RATE INCREASED [None]
